FAERS Safety Report 4705617-2 (Version None)
Quarter: 2005Q3

REPORT INFORMATION
  Report Type: 
  Country: None (occurrence: None)
  Receive Date: 20050701
  Receipt Date: 20050617
  Transmission Date: 20060218
  Serious: Yes (Hospitalization)
  Sender: FDA-Public Use
  Company Number: FR-BOEHRINGER INGELHEIM PHARMACEUTICALS, INC.-2005-FF-00440FF

PATIENT
  Sex: Male
  Weight: 14 kg

DRUGS (7)
  1. VIRAMUNE [Suspect]
     Indication: VERTICAL INFECTION TRANSMISSION
     Route: 048
     Dates: start: 20000520, end: 20000520
  2. VIRAMUNE [Suspect]
     Route: 015
     Dates: start: 20000518, end: 20000518
  3. RETROVIR [Suspect]
     Indication: VERTICAL INFECTION TRANSMISSION
     Route: 048
     Dates: start: 20000518, end: 20000629
  4. RETROVIR [Suspect]
     Route: 015
     Dates: start: 20000518, end: 20000518
  5. VIRACEPT [Suspect]
     Indication: HIV INFECTION
     Route: 015
     Dates: end: 20000518
  6. COMBIVIR [Suspect]
     Indication: HIV INFECTION
     Route: 015
     Dates: end: 20000518
  7. GYNOPEVARYL [Concomitant]
     Route: 015

REACTIONS (8)
  - BLOOD LACTIC ACID INCREASED [None]
  - CAESAREAN SECTION [None]
  - DRUG EXPOSURE DURING PREGNANCY [None]
  - HYPERCHOLESTEROLAEMIA [None]
  - HYPERTRIGLYCERIDAEMIA [None]
  - MACROCYTOSIS [None]
  - NEUTROPENIA NEONATAL [None]
  - SPEECH DISORDER DEVELOPMENTAL [None]
